FAERS Safety Report 21991676 (Version 1)
Quarter: 2023Q1

REPORT INFORMATION
  Report Type: Spontaneous
  Country: CN (occurrence: CN)
  Receive Date: 20230214
  Receipt Date: 20230214
  Transmission Date: 20230417
  Serious: Yes (Other)
  Sender: FDA-Public Use
  Company Number: CN-Merck Healthcare KGaA-9381472

PATIENT
  Age: 49 Year
  Sex: Female
  Weight: 48 kg

DRUGS (5)
  1. ERBITUX [Suspect]
     Active Substance: CETUXIMAB
     Indication: Rectal cancer
     Dosage: 140 ML, UNKNOWN
     Route: 041
     Dates: start: 20221212, end: 20221212
  2. IRINOTECAN HYDROCHLORIDE [Suspect]
     Active Substance: IRINOTECAN HYDROCHLORIDE
     Indication: Rectal cancer
     Dosage: UNK UNK, UNKNOWN
     Route: 041
     Dates: start: 20221212, end: 20221212
  3. CAPECITABINE [Suspect]
     Active Substance: CAPECITABINE
     Indication: Rectal cancer
     Dosage: 1.5 MG, UNKNOWN
     Route: 048
     Dates: start: 20221212, end: 20221212
  4. DEXTROSE [Concomitant]
     Active Substance: DEXTROSE
     Indication: Medication dilution
     Dosage: UNK UNK, UNKNOWN
     Route: 041
     Dates: start: 20221212, end: 20221212
  5. SODIUM CHLORIDE [Concomitant]
     Active Substance: SODIUM CHLORIDE
     Indication: Medication dilution
     Dosage: UNK UNK, UNKNOWN
     Route: 041
     Dates: start: 20221212, end: 20221212

REACTIONS (2)
  - Neutrophil count decreased [Recovered/Resolved]
  - White blood cell count decreased [Recovered/Resolved]

NARRATIVE: CASE EVENT DATE: 20221219
